FAERS Safety Report 25738219 (Version 1)
Quarter: 2025Q3

REPORT INFORMATION
  Report Type: Spontaneous
  Country: CN (occurrence: CN)
  Receive Date: 20250829
  Receipt Date: 20250829
  Transmission Date: 20251021
  Serious: Yes (Hospitalization, Other)
  Sender: BAXTER
  Company Number: None

PATIENT
  Age: 33 Year
  Sex: Female
  Weight: 45 kg

DRUGS (6)
  1. CYCLOPHOSPHAMIDE [Suspect]
     Active Substance: CYCLOPHOSPHAMIDE
     Indication: Breast cancer female
     Dosage: 0.8 G, QD, IVGTT
     Route: 041
     Dates: start: 20250701, end: 20250701
  2. SODIUM CHLORIDE [Suspect]
     Active Substance: SODIUM CHLORIDE
     Dosage: 0.9% NACL, 250 ML, QD, IVGTT, D1, WITH DOCETAXEL
     Route: 041
     Dates: start: 20250701, end: 20250701
  3. SODIUM CHLORIDE [Suspect]
     Active Substance: SODIUM CHLORIDE
     Dosage: 0.9%NACL,100 ML, QD, IVGTT, D1, WITH CYCLOPHOSPHAMIDE
     Route: 041
     Dates: start: 20250701, end: 20250701
  4. SODIUM CHLORIDE [Suspect]
     Active Substance: SODIUM CHLORIDE
     Dosage: 250 ML, QD, IVGTT, D1, WITH TRASTUZUMAB
     Route: 041
     Dates: start: 20250701, end: 20250701
  5. DOCETAXEL [Suspect]
     Active Substance: DOCETAXEL
     Indication: Breast cancer female
     Dosage: 100 MG, QD, IVGTT, D1
     Route: 041
     Dates: start: 20250701, end: 20250701
  6. HERCEPTIN [Suspect]
     Active Substance: TRASTUZUMAB
     Indication: Breast cancer female
     Dosage: 210 MG, QD, 35 PARTS IVGTT
     Route: 041
     Dates: start: 20250701, end: 20250701

REACTIONS (3)
  - Agranulocytosis [Recovering/Resolving]
  - Pyrexia [Recovering/Resolving]
  - Temperature intolerance [Recovering/Resolving]

NARRATIVE: CASE EVENT DATE: 20250706
